FAERS Safety Report 16357222 (Version 4)
Quarter: 2019Q3

REPORT INFORMATION
  Report Type: Spontaneous
  Country: GB (occurrence: GB)
  Receive Date: 20190527
  Receipt Date: 20190807
  Transmission Date: 20191004
  Serious: Yes (Death)
  Sender: FDA-Public Use
  Company Number: GB-ROCHE-2324436

PATIENT
  Age: 39 Year
  Sex: Male
  Weight: 91 kg

DRUGS (18)
  1. DIAZEPAM. [Suspect]
     Active Substance: DIAZEPAM
     Indication: PRODUCT USED FOR UNKNOWN INDICATION
     Route: 065
  2. ALPRAZOLAM. [Concomitant]
     Active Substance: ALPRAZOLAM
  3. PREGABALIN. [Interacting]
     Active Substance: PREGABALIN
     Indication: PRODUCT USED FOR UNKNOWN INDICATION
     Route: 065
  4. PREGABALIN. [Concomitant]
     Active Substance: PREGABALIN
  5. NICOTINE. [Concomitant]
     Active Substance: NICOTINE
  6. PARACETAMOL [Concomitant]
     Active Substance: ACETAMINOPHEN
  7. BUPRENORPHINE. [Interacting]
     Active Substance: BUPRENORPHINE
     Indication: PRODUCT USED FOR UNKNOWN INDICATION
     Route: 065
  8. TEGRETOL [Concomitant]
     Active Substance: CARBAMAZEPINE
  9. TRAZODONE [Concomitant]
     Active Substance: TRAZODONE HYDROCHLORIDE
  10. PROPRANOLOL [Concomitant]
     Active Substance: PROPRANOLOL HYDROCHLORIDE
  11. NOSCAPINE [Concomitant]
     Active Substance: NOSCAPINE
  12. DABIGATRAN [Concomitant]
     Active Substance: DABIGATRAN
  13. MORPHINE SULFATE. [Interacting]
     Active Substance: MORPHINE SULFATE
     Indication: PRODUCT USED FOR UNKNOWN INDICATION
     Route: 065
  14. CAFFEINE. [Concomitant]
     Active Substance: CAFFEINE
  15. PAPAVERINE [Concomitant]
     Active Substance: PAPAVERINE
  16. CODEINE [Interacting]
     Active Substance: CODEINE
     Indication: PRODUCT USED FOR UNKNOWN INDICATION
     Route: 065
  17. ALCOHOL. [Concomitant]
     Active Substance: ALCOHOL
  18. BUPRENORPHINE. [Concomitant]
     Active Substance: BUPRENORPHINE

REACTIONS (5)
  - Toxicity to various agents [Fatal]
  - Overdose [Fatal]
  - Alcohol interaction [Fatal]
  - Intentional product misuse [Fatal]
  - Drug interaction [Fatal]
